FAERS Safety Report 4918731-3 (Version None)
Quarter: 2006Q1

REPORT INFORMATION
  Report Type: 
  Country: None (occurrence: None)
  Receive Date: 20060221
  Receipt Date: 20060221
  Transmission Date: 20060701
  Serious: Yes (Hospitalization)
  Sender: FDA-Public Use
  Company Number: None

PATIENT
  Age: 60 Year
  Sex: Male
  Weight: 98 kg

DRUGS (4)
  1. PLAVIX [Suspect]
     Indication: CORONARY ARTERY DISEASE
     Dosage: 75 MG DAILY ORAL
     Route: 048
     Dates: end: 20060216
  2. PLAVIX [Suspect]
     Indication: STENT PLACEMENT
     Dosage: 75 MG DAILY ORAL
     Route: 048
     Dates: end: 20060216
  3. ASPIRIN [Suspect]
     Indication: CORONARY ARTERY DISEASE
     Dosage: 81 DAILY ORAL
     Route: 048
     Dates: start: 19990101, end: 20060215
  4. ASPIRIN [Suspect]
     Indication: STENT PLACEMENT
     Dosage: 81 DAILY ORAL
     Route: 048
     Dates: start: 19990101, end: 20060215

REACTIONS (5)
  - EROSIVE OESOPHAGITIS [None]
  - FAECES DISCOLOURED [None]
  - HAEMATEMESIS [None]
  - HIATUS HERNIA [None]
  - OESOPHAGEAL ULCER [None]
